FAERS Safety Report 10907673 (Version 1)
Quarter: 2015Q1

REPORT INFORMATION
  Report Type: Spontaneous
  Country: None (occurrence: None)
  Receive Date: 20150309
  Receipt Date: 20150309
  Transmission Date: 20150721
  Serious: Yes (Hospitalization)
  Sender: FDA-Public Use
  Company Number: None

PATIENT
  Age: 32 Year
  Sex: Female
  Weight: 63.5 kg

DRUGS (4)
  1. TRAMADOL [Suspect]
     Active Substance: TRAMADOL
     Indication: BACK PAIN
     Dosage: ONE TIME INJECTION
     Dates: start: 20150302, end: 20150302
  2. MOTRIN [Concomitant]
     Active Substance: IBUPROFEN
  3. HYDROCORTISONE. [Concomitant]
     Active Substance: HYDROCORTISONE
  4. NEXIUM [Concomitant]
     Active Substance: ESOMEPRAZOLE MAGNESIUM

REACTIONS (6)
  - Migraine [None]
  - Myalgia [None]
  - Musculoskeletal stiffness [None]
  - Pain [None]
  - Pyrexia [None]
  - Arthralgia [None]

NARRATIVE: CASE EVENT DATE: 20150301
